FAERS Safety Report 19052075 (Version 1)
Quarter: 2021Q1

REPORT INFORMATION
  Report Type: Spontaneous
  Country: GB (occurrence: GB)
  Receive Date: 20210324
  Receipt Date: 20210324
  Transmission Date: 20210420
  Serious: Yes (Hospitalization)
  Sender: FDA-Public Use
  Company Number: GB-PFIZER INC-2021293252

PATIENT
  Age: 62 Year
  Sex: Male

DRUGS (2)
  1. VIZIMPRO [Suspect]
     Active Substance: DACOMITINIB
     Dosage: 45 MG, 1X/DAY (OD)
  2. VIZIMPRO [Suspect]
     Active Substance: DACOMITINIB
     Dosage: 30 MG

REACTIONS (4)
  - Rash [Unknown]
  - Dysphagia [Unknown]
  - Hypersensitivity [Unknown]
  - Mouth ulceration [Unknown]
